FAERS Safety Report 8784343 (Version 1)
Quarter: 2012Q4

REPORT INFORMATION
  Report Type: 
  Country: US (occurrence: US)
  Receive Date: 20120913
  Receipt Date: 20120913
  Transmission Date: 20130627
  Serious: No
  Sender: FDA-Public Use
  Company Number: US-009507513-1208USA011430

PATIENT

DRUGS (4)
  1. VICTRELIS [Suspect]
     Indication: HEPATITIS C
     Dosage: UNK
     Dates: start: 20120601
  2. REBETOL [Suspect]
     Indication: HEPATITIS C
     Dosage: 600 mg, qd
     Dates: start: 20120504, end: 20120724
  3. REBETOL [Suspect]
     Dosage: 400 mg, qd
     Dates: start: 20120725
  4. PEG-INTRON [Suspect]
     Indication: HEPATITIS C
     Dosage: UNK
     Dates: start: 20120504

REACTIONS (10)
  - Anaemia [Unknown]
  - Epistaxis [Unknown]
  - Fatigue [Unknown]
  - Rash [Unknown]
  - Capillary fragility [Unknown]
  - Swelling face [Unknown]
  - Dysgeusia [Unknown]
  - Malaise [Unknown]
  - Injection site rash [Unknown]
  - Herpes zoster [Unknown]
